FAERS Safety Report 8394392-9 (Version None)
Quarter: 2012Q2

REPORT INFORMATION
  Report Type: 
  Country: None (occurrence: None)
  Receive Date: 20120525
  Receipt Date: 20120525
  Transmission Date: 20120825
  Serious: Yes (Hospitalization)
  Sender: FDA-Public Use
  Company Number: None

PATIENT
  Sex: Female
  Weight: 21.6 kg

DRUGS (2)
  1. ZOSYN [Suspect]
     Indication: PNEUMONIA
     Dosage: 2000 MG Q 6 HOURS INTRAVENOUS
     Route: 042
     Dates: start: 20120424
  2. ZOSYN [Suspect]
     Indication: PNEUMONIA
     Dosage: 2000 MG Q 6 HOURS INTRAVENOUS
     Route: 042
     Dates: start: 20120405

REACTIONS (3)
  - HEPATITIS ACUTE [None]
  - NAUSEA [None]
  - VOMITING [None]
